FAERS Safety Report 9949910 (Version 1)
Quarter: 2014Q1

REPORT INFORMATION
  Report Type: Report from Study
  Country: US (occurrence: US)
  Receive Date: 20140304
  Receipt Date: 20140304
  Transmission Date: 20141002
  Serious: No
  Sender: FDA-Public Use
  Company Number: US-ABBVIE-13P-163-1069400-00

PATIENT
  Sex: Female
  Weight: 54.48 kg

DRUGS (5)
  1. HUMIRA [Suspect]
     Indication: RHEUMATOID ARTHRITIS
     Dates: start: 200403, end: 200509
  2. HUMIRA [Suspect]
     Dates: start: 2006, end: 2006
  3. ENBREL [Suspect]
     Indication: PRODUCT USED FOR UNKNOWN INDICATION
  4. REMICADE [Suspect]
     Indication: PRODUCT USED FOR UNKNOWN INDICATION
  5. SIMPONI [Concomitant]
     Indication: RHEUMATOID ARTHRITIS

REACTIONS (6)
  - Premature labour [Recovered/Resolved]
  - Drug ineffective [Recovered/Resolved]
  - Urticaria [Unknown]
  - Dermatitis allergic [Unknown]
  - Allergic respiratory symptom [Unknown]
  - Injection site erythema [Unknown]
